FAERS Safety Report 25236110 (Version 2)
Quarter: 2025Q2

REPORT INFORMATION
  Report Type: Spontaneous
  Country: JP (occurrence: JP)
  Receive Date: 20250424
  Receipt Date: 20250603
  Transmission Date: 20250716
  Serious: Yes (Hospitalization)
  Sender: ELI LILLY AND COMPANY
  Company Number: JP-ELI_LILLY_AND_COMPANY-JP202504019703

PATIENT

DRUGS (3)
  1. ALIMTA [Suspect]
     Active Substance: PEMETREXED DISODIUM
     Indication: Product used for unknown indication
     Route: 041
     Dates: start: 20250120, end: 20250120
  2. FOLIC ACID [Concomitant]
     Active Substance: FOLIC ACID
  3. VITAMIN B12 [Concomitant]
     Active Substance: CYANOCOBALAMIN

REACTIONS (1)
  - General physical health deterioration [Not Recovered/Not Resolved]
